FAERS Safety Report 13645612 (Version 3)
Quarter: 2017Q3

REPORT INFORMATION
  Report Type: Spontaneous
  Country: BR (occurrence: BR)
  Receive Date: 20170613
  Receipt Date: 20170721
  Transmission Date: 20171127
  Serious: Yes (Hospitalization)
  Sender: FDA-Public Use
  Company Number: BR-009507513-1706BRA004706

PATIENT
  Age: 72 Year
  Sex: Female
  Weight: 51 kg

DRUGS (4)
  1. JANUVIA [Suspect]
     Active Substance: SITAGLIPTIN PHOSPHATE
     Indication: TYPE 2 DIABETES MELLITUS
     Dosage: 1 TABLET, PER DAY IN THE MORNING
     Route: 048
     Dates: start: 2014, end: 201706
  2. GLIFAGE [Concomitant]
     Active Substance: METFORMIN HYDROCHLORIDE
     Indication: TYPE 2 DIABETES MELLITUS
     Dosage: 2 DF, QPM
     Route: 048
  3. GLIFAGE [Concomitant]
     Active Substance: METFORMIN HYDROCHLORIDE
     Dosage: 2 TABLETS IN THE EVENING
     Route: 048
  4. MICARDIS HCT [Suspect]
     Active Substance: HYDROCHLOROTHIAZIDE\TELMISARTAN
     Indication: HYPERTENSION
     Dosage: 1 TABLET, PER DAY
     Route: 048
     Dates: start: 2003

REACTIONS (8)
  - Blood glucose decreased [Recovered/Resolved]
  - Malaise [Recovered/Resolved]
  - Wrong technique in product usage process [Unknown]
  - Cold sweat [Recovered/Resolved]
  - Weight increased [Not Recovered/Not Resolved]
  - Skin discolouration [Recovered/Resolved]
  - Hypotension [Recovered/Resolved]
  - Hypoglycaemia [Not Recovered/Not Resolved]

NARRATIVE: CASE EVENT DATE: 2017
